FAERS Safety Report 6125891-8 (Version None)
Quarter: 2009Q1

REPORT INFORMATION
  Report Type: 
  Country: None (occurrence: None)
  Receive Date: 20090320
  Receipt Date: 20090309
  Transmission Date: 20090719
  Serious: Yes (Life-Threatening, Hospitalization, Other)
  Sender: FDA-Public Use
  Company Number: DE-PURDUE-DEU_2009_0004943

PATIENT
  Age: 81 Year
  Sex: Female
  Weight: 68 kg

DRUGS (16)
  1. OXYGESIC 10 MG [Suspect]
     Indication: PAIN
     Dosage: 10 MG, BID
     Route: 048
     Dates: end: 20090104
  2. NOVALGIN                           /00039501/ [Concomitant]
  3. ARCOXIA [Concomitant]
  4. CLEXANE [Concomitant]
  5. FURADANTIN [Concomitant]
  6. MARCUMAR [Concomitant]
  7. LISINOPRIL [Concomitant]
  8. PANTOZOL                           /01263202/ [Concomitant]
  9. BONVIVA                            /01304701/ [Concomitant]
  10. TROMCARDIN                         /00196901/ [Concomitant]
  11. CALCIGEN D [Concomitant]
  12. AMLODIPINE [Concomitant]
  13. HYDROCHLOROTHIAZIDE [Concomitant]
  14. BISO LICH [Concomitant]
  15. JONOSTERIL                         /00351401/ [Concomitant]
  16. VITAMIN B12                        /00056201/ [Concomitant]

REACTIONS (7)
  - ASPIRATION [None]
  - DISORIENTATION [None]
  - ILEUS PARALYTIC [None]
  - PNEUMONIA [None]
  - RESTLESSNESS [None]
  - SEPSIS [None]
  - SLUGGISHNESS [None]
